FAERS Safety Report 12453509 (Version 2)
Quarter: 2016Q3

REPORT INFORMATION
  Report Type: Spontaneous
  Country: US (occurrence: US)
  Receive Date: 20160609
  Receipt Date: 20160720
  Transmission Date: 20161109
  Serious: Yes (Hospitalization)
  Sender: FDA-Public Use
  Company Number: US-DSJP-DSU-2015-119462

PATIENT
  Age: 67 Year
  Sex: Female
  Weight: 72.56 kg

DRUGS (3)
  1. LOSARTAN AND HYDROCHLOROTHIAZIDE [Concomitant]
     Active Substance: HYDROCHLOROTHIAZIDE\LOSARTAN POTASSIUM
     Indication: HYPERTENSION
     Dosage: 100-25
     Dates: start: 2014
  2. BENICAR HCT [Suspect]
     Active Substance: HYDROCHLOROTHIAZIDE\OLMESARTAN MEDOXOMIL
     Indication: HYPERTENSION
     Dosage: 40-25 MG, QD
     Route: 048
     Dates: start: 2012, end: 2014
  3. BENICAR [Suspect]
     Active Substance: OLMESARTAN MEDOXOMIL
     Indication: HYPERTENSION
     Dosage: UNK
     Dates: start: 2007, end: 2007

REACTIONS (11)
  - Malabsorption [Unknown]
  - Dizziness [Unknown]
  - Haemangioma of liver [Unknown]
  - Adenomatous polyposis coli [Unknown]
  - Constipation [Unknown]
  - Gallbladder disorder [Recovered/Resolved]
  - Fatigue [Unknown]
  - Gastrointestinal haemorrhage [Unknown]
  - Irritable bowel syndrome [Unknown]
  - Gastrooesophageal reflux disease [Unknown]
  - Abdominal pain [Not Recovered/Not Resolved]

NARRATIVE: CASE EVENT DATE: 2007
